FAERS Safety Report 23937266 (Version 1)
Quarter: 2024Q2

REPORT INFORMATION
  Report Type: Spontaneous
  Country: US (occurrence: US)
  Receive Date: 20240604
  Receipt Date: 20240604
  Transmission Date: 20240716
  Serious: Yes (Other)
  Sender: FDA-Public Use
  Company Number: US-AMGEN-USASP2024108887

PATIENT
  Age: 69 Year
  Sex: Male

DRUGS (7)
  1. PREDNISONE [Suspect]
     Active Substance: PREDNISONE
     Indication: Pericarditis
     Dosage: 40 MILLIGRAM
     Route: 065
     Dates: start: 202102
  2. PREDNISONE [Suspect]
     Active Substance: PREDNISONE
     Dosage: 40 MILLIGRAM, TAPPERED
     Route: 065
     Dates: start: 202105
  3. PREDNISONE [Suspect]
     Active Substance: PREDNISONE
     Dosage: 15 MILLIGRAM
     Route: 065
     Dates: start: 202201
  4. PREDNISONE [Suspect]
     Active Substance: PREDNISONE
     Dosage: 12.5 MILLIGRAM
     Route: 065
     Dates: start: 202202
  5. IBUPROFEN [Concomitant]
     Active Substance: IBUPROFEN
     Indication: Pericarditis
     Dosage: 800 MILLIGRAM, TID
     Route: 065
     Dates: start: 202102
  6. COLCHICINE [Concomitant]
     Active Substance: COLCHICINE
     Indication: Pericarditis
     Dosage: 0.6 MILLIGRAM, BID
     Route: 065
     Dates: start: 202102
  7. ANAKINRA [Concomitant]
     Active Substance: ANAKINRA
     Indication: Pericarditis
     Dosage: 100 MILLIGRAM
     Route: 065
     Dates: start: 202103

REACTIONS (2)
  - Pericarditis rheumatic [Unknown]
  - Rheumatoid arthritis [Unknown]

NARRATIVE: CASE EVENT DATE: 20230201
